FAERS Safety Report 10154660 (Version 1)
Quarter: 2014Q2

REPORT INFORMATION
  Report Type: Spontaneous
  Country: US (occurrence: None)
  Receive Date: 20140505
  Receipt Date: 20140505
  Transmission Date: 20141212
  Serious: Yes (Disabling, Other)
  Sender: FDA-Public Use
  Company Number: None

PATIENT
  Age: 26 Year
  Sex: Female
  Weight: 71.67 kg

DRUGS (1)
  1. PARAGARD [Suspect]

REACTIONS (14)
  - Candida infection [None]
  - Speech disorder [None]
  - Hypophagia [None]
  - Dysphagia [None]
  - Disease recurrence [None]
  - Dysgeusia [None]
  - Tongue ulceration [None]
  - Stomatitis [None]
  - Tongue geographic [None]
  - Drug effect decreased [None]
  - Malnutrition [None]
  - Somnolence [None]
  - Nausea [None]
  - Vomiting [None]
